FAERS Safety Report 4745362-0 (Version None)
Quarter: 2005Q3

REPORT INFORMATION
  Report Type: 
  Country: None (occurrence: None)
  Receive Date: 20050815
  Receipt Date: 20050728
  Transmission Date: 20060218
  Serious: Yes (Hospitalization)
  Sender: FDA-Public Use
  Company Number: 2005091762

PATIENT
  Age: 14 Year
  Sex: Female
  Weight: 46 kg

DRUGS (3)
  1. ACTIFED JOUR ET NUIT (DAY) (PARACETAMOL, PSEUDOEPHEDRINE) [Suspect]
     Indication: NASOPHARYNGITIS
     Dosage: 3 TABS PER DAY FOR 3 DAYS, ORAL
     Route: 048
     Dates: start: 20050523, end: 20050525
  2. ACTIFED NIGHTTIME (DIPHENHYDRAMINE, PARACETAMOL) [Suspect]
     Indication: NASOPHARYNGITIS
     Dosage: 3 TABS PER DAY FOR 3 DAYS, ORAL
     Route: 048
     Dates: start: 20050523, end: 20050525
  3. ACTIFED RHUME (PARACETAMOL, PSEUDOEPHEDRINE HYDROCHLORIDE, TRIPROLIDIN [Suspect]
     Indication: NASOPHARYNGITIS
     Dosage: 3 TABS PER DAY FOR 2 DAYS, ORAL
     Route: 048
     Dates: start: 20050521, end: 20050522

REACTIONS (2)
  - ISCHAEMIC STROKE [None]
  - SINUS ARRHYTHMIA [None]
